FAERS Safety Report 13689432 (Version 1)
Quarter: 2017Q2

REPORT INFORMATION
  Report Type: Spontaneous
  Country: US (occurrence: US)
  Receive Date: 20170625
  Receipt Date: 20170625
  Transmission Date: 20170830
  Serious: Yes (Life-Threatening, Disabling, Other)
  Sender: FDA-Public Use
  Company Number: None

PATIENT
  Age: 64 Year
  Sex: Female
  Weight: 72.64 kg

DRUGS (18)
  1. TRAMADOL, 50 MG [Suspect]
     Active Substance: TRAMADOL
     Indication: PLANTAR FASCIITIS
     Route: 048
  2. AMLODIPINE BESYLATE. [Concomitant]
     Active Substance: AMLODIPINE BESYLATE
  3. CPAP [Concomitant]
     Active Substance: DEVICE
  4. ARMADAFINIL [Concomitant]
  5. LOATHSOME D [Concomitant]
  6. METOPROLOL SUCCINATE ER [Concomitant]
     Active Substance: METOPROLOL SUCCINATE
  7. CAM BOOT [Suspect]
     Active Substance: DEVICE
     Indication: PLANTAR FASCIITIS
     Dosage: 1 PAIR  ON
  8. LEVOTHYROXINE. [Concomitant]
     Active Substance: LEVOTHYROXINE
  9. CYANOCOBALAMIN. [Concomitant]
     Active Substance: CYANOCOBALAMIN
  10. FOLIO ACID [Concomitant]
  11. MULTIVITAMIN ADULTS 50+ [Concomitant]
  12. ACETAMINOPHEN. [Concomitant]
     Active Substance: ACETAMINOPHEN
  13. DULOXENTINE [Concomitant]
  14. OMEPRAZOLE DR [Concomitant]
     Active Substance: OMEPRAZOLE
  15. PREDNISONE. [Concomitant]
     Active Substance: PREDNISONE
  16. LOSARTAN. [Concomitant]
     Active Substance: LOSARTAN
  17. CALIUM CARB-CHOLECALCIFEROL [Concomitant]
  18. METHYLCELLULOSE [Concomitant]
     Active Substance: METHYLCELLULOSES

REACTIONS (14)
  - Rash macular [None]
  - Abdominal pain upper [None]
  - Panic reaction [None]
  - Skin abrasion [None]
  - Blood pressure increased [None]
  - Hyperhidrosis [None]
  - Pain [None]
  - Swelling [None]
  - Diarrhoea [None]
  - Vomiting [None]
  - Urticaria [None]
  - Contusion [None]
  - Onychoclasis [None]
  - Anxiety [None]

NARRATIVE: CASE EVENT DATE: 20170605
